FAERS Safety Report 23389015 (Version 4)
Quarter: 2024Q4

REPORT INFORMATION
  Report Type: Spontaneous
  Country: US (occurrence: US)
  Receive Date: 20240110
  Receipt Date: 20241126
  Transmission Date: 20250115
  Serious: Yes (Hospitalization, Other)
  Sender: PFIZER
  Company Number: US-PFIZER INC-202400001370

PATIENT
  Age: 85 Year
  Sex: Male
  Weight: 79.365 kg

DRUGS (2)
  1. GENOTROPIN [Suspect]
     Active Substance: SOMATROPIN
     Dosage: 0.8 MG, DAILY
  2. GENOTROPIN [Suspect]
     Active Substance: SOMATROPIN
     Dosage: 6 MG, DAILY

REACTIONS (8)
  - Hepatic cancer [Not Recovered/Not Resolved]
  - Hepatic lesion [Unknown]
  - Weight decreased [Unknown]
  - General physical health deterioration [Unknown]
  - Asthenia [Unknown]
  - Quality of life decreased [Unknown]
  - Intentional product misuse [Unknown]
  - Fatigue [Unknown]
